FAERS Safety Report 8879559 (Version 1)
Quarter: 2012Q4

REPORT INFORMATION
  Report Type: 
  Country: US (occurrence: US)
  Receive Date: 20121031
  Receipt Date: 20121031
  Transmission Date: 20130627
  Serious: No
  Sender: FDA-Public Use
  Company Number: US-009507513-1210USA012344

PATIENT
  Age: 78 Year
  Sex: Female

DRUGS (1)
  1. FOSAMAX [Suspect]
     Dosage: UNK
     Route: 048

REACTIONS (1)
  - Gastric disorder [Unknown]
